FAERS Safety Report 24574476 (Version 1)
Quarter: 2024Q4

REPORT INFORMATION
  Report Type: Spontaneous
  Country: AU (occurrence: AU)
  Receive Date: 20241104
  Receipt Date: 20241104
  Transmission Date: 20250115
  Serious: Yes (Other)
  Sender: BIOVITRUM
  Company Number: AU-BIOVITRUM-2024-AU-013919

PATIENT
  Age: 60 Year
  Sex: Female

DRUGS (1)
  1. ANAKINRA [Suspect]
     Active Substance: ANAKINRA
     Indication: Muckle-Wells syndrome

REACTIONS (2)
  - Amyloidosis [Unknown]
  - Off label use [Unknown]
